FAERS Safety Report 7444859-2 (Version None)
Quarter: 2011Q2

REPORT INFORMATION
  Report Type: 
  Country: None (occurrence: None)
  Receive Date: 20110429
  Receipt Date: 20110417
  Transmission Date: 20111010
  Serious: No
  Sender: FDA-Public Use
  Company Number: TH-BRISTOL-MYERS SQUIBB COMPANY-15630916

PATIENT

DRUGS (1)
  1. VIDEX EC [Suspect]
     Dosage: RECOMMENDED DOSE IS 125MG

REACTIONS (1)
  - OVERDOSE [None]
